FAERS Safety Report 11749773 (Version 1)
Quarter: 2015Q4

REPORT INFORMATION
  Report Type: Spontaneous
  Country: US (occurrence: None)
  Receive Date: 20151117
  Receipt Date: 20151117
  Transmission Date: 20160304
  Serious: Yes (Other)
  Sender: FDA-Public Use
  Company Number: None

PATIENT
  Age: 44 Year
  Sex: Female
  Weight: 89.36 kg

DRUGS (1)
  1. METRONIDAZOLE .75% G AND W LABS [Suspect]
     Active Substance: METRONIDAZOLE
     Dosage: THIN SMEAR, APPLIED TO A SURFACE, USUALLY THE SKIN
     Route: 061
     Dates: start: 20151116

REACTIONS (6)
  - Rhinorrhoea [None]
  - Pyrexia [None]
  - Abdominal pain upper [None]
  - Chills [None]
  - Nausea [None]
  - Pruritus [None]

NARRATIVE: CASE EVENT DATE: 20151116
